FAERS Safety Report 6144590-X (Version None)
Quarter: 2009Q2

REPORT INFORMATION
  Report Type: 
  Country: None (occurrence: None)
  Receive Date: 20090402
  Receipt Date: 20081222
  Transmission Date: 20091009
  Serious: No
  Sender: FDA-Public Use
  Company Number: 1000004189

PATIENT
  Sex: Male

DRUGS (2)
  1. BYSTOLIC [Suspect]
     Dates: start: 20080101
  2. HUMIRA [Concomitant]

REACTIONS (1)
  - PSORIASIS [None]
